FAERS Safety Report 6936308-5 (Version None)
Quarter: 2010Q3

REPORT INFORMATION
  Report Type: 
  Country: None (occurrence: None)
  Receive Date: 20100823
  Receipt Date: 20100816
  Transmission Date: 20110219
  Serious: Yes (Hospitalization)
  Sender: FDA-Public Use
  Company Number: CA-SANOFI-AVENTIS-2010SA048700

PATIENT
  Age: 78 Year
  Sex: Male

DRUGS (4)
  1. LANTUS [Suspect]
     Route: 058
     Dates: start: 20000101
  2. HUMALOG [Concomitant]
     Dosage: 4-5IU
     Route: 058
  3. ANTIHYPERTENSIVES [Concomitant]
  4. NITROGLYCERIN [Concomitant]

REACTIONS (2)
  - MALAISE [None]
  - MEDICATION ERROR [None]
